FAERS Safety Report 7826371-1 (Version None)
Quarter: 2011Q4

REPORT INFORMATION
  Report Type: 
  Country: None (occurrence: None)
  Receive Date: 20111020
  Receipt Date: 20111014
  Transmission Date: 20120403
  Serious: No
  Sender: FDA-Public Use
  Company Number: US-BIOGENIDEC-2011BI039367

PATIENT
  Age: 50 Year
  Sex: Female

DRUGS (3)
  1. TYSABRI [Suspect]
     Indication: MULTIPLE SCLEROSIS
     Route: 042
     Dates: start: 20111011
  2. TYSABRI [Suspect]
     Route: 042
     Dates: start: 20111011
  3. TYSABRI [Suspect]
     Indication: DYSPNOEA
     Route: 042
     Dates: start: 20111011

REACTIONS (6)
  - MUSCLE SPASMS [None]
  - DYSGEUSIA [None]
  - HEART RATE INCREASED [None]
  - DYSPNOEA [None]
  - HYPERTENSION [None]
  - NAUSEA [None]
